FAERS Safety Report 8122219-9 (Version None)
Quarter: 2012Q1

REPORT INFORMATION
  Report Type: 
  Country: None (occurrence: None)
  Receive Date: 20120208
  Receipt Date: 20120202
  Transmission Date: 20120608
  Serious: Yes (Hospitalization)
  Sender: FDA-Public Use
  Company Number: AU-B.I. PHARMACEUTICALS,INC./RIDGEFIELD-2011-AU-01968AU

PATIENT
  Sex: Male
  Weight: 70 kg

DRUGS (9)
  1. METOPROLOL [Concomitant]
     Dosage: 50 MG
  2. NEXIUM [Concomitant]
     Dosage: 20 MG
  3. ASPIRIN [Concomitant]
     Dosage: 100 MG
  4. AMIODARONE [Concomitant]
     Dosage: 100 MG
  5. SPIRIVA [Concomitant]
     Dosage: 18 MCG
  6. LEVOTHYROXINE SODIUM [Concomitant]
     Dosage: 50 MCG
  7. PRADAXA [Suspect]
     Indication: LEFT VENTRICULAR FAILURE
     Dosage: 220 MG
     Dates: start: 20110908
  8. IMDUR [Concomitant]
     Dosage: 30 MG
  9. FUROSEMIDE [Concomitant]
     Dosage: 40 MG

REACTIONS (1)
  - DEEP VEIN THROMBOSIS [None]
